FAERS Safety Report 6171222-7 (Version None)
Quarter: 2009Q2

REPORT INFORMATION
  Report Type: 
  Country: None (occurrence: None)
  Receive Date: 20090428
  Receipt Date: 20090428
  Transmission Date: 20091009
  Serious: Yes (Hospitalization)
  Sender: FDA-Public Use
  Company Number: None

PATIENT
  Age: 74 Year
  Sex: Female
  Weight: 72.5755 kg

DRUGS (2)
  1. LEVAQUIN [Suspect]
     Indication: RESPIRATORY TRACT INFECTION
     Dates: start: 20090125, end: 20090210
  2. LEVAQUIN [Suspect]
     Indication: SINUS DISORDER
     Dates: start: 20090125, end: 20090210

REACTIONS (2)
  - SYNOVIAL RUPTURE [None]
  - TENDON RUPTURE [None]
